FAERS Safety Report 9789149 (Version 4)
Quarter: 2014Q1

REPORT INFORMATION
  Report Type: Spontaneous
  Country: JP (occurrence: JP)
  Receive Date: 20131230
  Receipt Date: 20140212
  Transmission Date: 20141002
  Serious: Yes (Other)
  Sender: FDA-Public Use
  Company Number: JP-UCBSA-072670

PATIENT
  Age: 30 Year
  Sex: Female
  Weight: 67.5 kg

DRUGS (7)
  1. E KEPPRA [Suspect]
     Indication: PARTIAL SEIZURES
     Route: 048
     Dates: start: 20100928, end: 20101025
  2. E KEPPRA [Suspect]
     Indication: PARTIAL SEIZURES
     Route: 048
     Dates: start: 20101026, end: 20101108
  3. E KEPPRA [Suspect]
     Indication: PARTIAL SEIZURES
     Route: 048
     Dates: start: 20101109, end: 20110314
  4. E KEPPRA [Suspect]
     Indication: PARTIAL SEIZURES
     Dosage: 500 MG 4/DAY, 250 MG 2/DAY
     Route: 048
     Dates: start: 20110315, end: 20130826
  5. ALEVIATIN [Suspect]
     Indication: EPILEPSY
     Dosage: 100 MG + 200 MG, DAILY DOSE: 300 MG
     Route: 048
     Dates: start: 20100928
  6. TEGRETOL [Suspect]
     Indication: EPILEPSY
     Route: 048
     Dates: start: 20100928
  7. PHENOBAL [Suspect]
     Indication: EPILEPSY
     Route: 048
     Dates: start: 20100928

REACTIONS (4)
  - Premature delivery [Recovered/Resolved]
  - Caesarean section [Recovered/Resolved]
  - Premature labour [Unknown]
  - Pregnancy [Recovered/Resolved]
